FAERS Safety Report 20884291 (Version 1)
Quarter: 2022Q2

REPORT INFORMATION
  Report Type: Spontaneous
  Country: US (occurrence: None)
  Receive Date: 20220527
  Receipt Date: 20220527
  Transmission Date: 20220720
  Serious: No
  Sender: FDA-Public Use
  Company Number: None

PATIENT
  Sex: Male
  Weight: 63.9 kg

DRUGS (6)
  1. TRELEGY ELLIPTA [Suspect]
     Active Substance: FLUTICASONE FUROATE\UMECLIDINIUM BROMIDE\VILANTEROL TRIFENATATE
     Indication: Chronic obstructive pulmonary disease
     Dosage: OTHER STRENGTH : MCG;?OTHER QUANTITY : 1 PUFF(S);?FREQUENCY : DAILY;?
     Dates: start: 20220101, end: 20220524
  2. METOPROLOL [Concomitant]
     Active Substance: METOPROLOL
  3. AMLODIPINE [Concomitant]
     Active Substance: AMLODIPINE BESYLATE
  4. VITAMIN B12 [Concomitant]
     Active Substance: CYANOCOBALAMIN
  5. LOW DOSE ASPIRIN [Concomitant]
     Active Substance: ASPIRIN
  6. MINERALS\VITAMINS [Concomitant]
     Active Substance: MINERALS\VITAMINS

REACTIONS (6)
  - Arthralgia [None]
  - Back pain [None]
  - Neck pain [None]
  - Therapeutic product effect decreased [None]
  - Pain in extremity [None]
  - Arthralgia [None]
